FAERS Safety Report 5212747-8 (Version None)
Quarter: 2006Q4

REPORT INFORMATION
  Report Type: 
  Country: None (occurrence: None)
  Receive Date: 20061115
  Receipt Date: 20060905
  Transmission Date: 20070319
  Serious: No
  Sender: FDA-Public Use
  Company Number: 200615528BWH

PATIENT
  Sex: Male

DRUGS (2)
  1. NEXAVAR [Suspect]
     Indication: METASTATIC RENAL CELL CARCINOMA
     Dosage: 400 MG, BID, ORAL
     Route: 048
     Dates: start: 20060825, end: 20060901
  2. PAIN MEDICATION [Concomitant]

REACTIONS (2)
  - RASH ERYTHEMATOUS [None]
  - RASH GENERALISED [None]
